FAERS Safety Report 8791185 (Version 1)
Quarter: 2012Q4

REPORT INFORMATION
  Report Type: Spontaneous
  Country: US (occurrence: None)
  Receive Date: 20120913
  Receipt Date: 20120913
  Transmission Date: 20130627
  Serious: Yes (Disabling)
  Sender: FDA-Public Use
  Company Number: None

PATIENT
  Age: 78 Year
  Sex: Female
  Weight: 70.31 kg

DRUGS (4)
  1. NORCO [Suspect]
     Indication: HAND OPERATION
     Dosage: 1 tablet 4 to 6 hrs oral
     Route: 048
  2. CRESTOR [Concomitant]
  3. COREG [Concomitant]
  4. OMEPRAZOLE [Concomitant]

REACTIONS (10)
  - Blister [None]
  - Pruritus [None]
  - Erythema [None]
  - Erythema [None]
  - Eye disorder [None]
  - Erythema [None]
  - Oral disorder [None]
  - Nasal disorder [None]
  - Cheilitis [None]
  - Lip pain [None]
